FAERS Safety Report 7768304-2 (Version None)
Quarter: 2011Q3

REPORT INFORMATION
  Report Type: 
  Country: None (occurrence: None)
  Receive Date: 20110922
  Receipt Date: 20110225
  Transmission Date: 20111222
  Serious: No
  Sender: FDA-Public Use
  Company Number: US-ASTRAZENECA-2011SE11018

PATIENT
  Sex: Female

DRUGS (1)
  1. SEROQUEL [Suspect]
     Route: 048
     Dates: start: 20110101

REACTIONS (5)
  - THIRST [None]
  - HUNGER [None]
  - ANXIETY [None]
  - POLLAKIURIA [None]
  - SOMNOLENCE [None]
